FAERS Safety Report 17143515 (Version 1)
Quarter: 2019Q4

REPORT INFORMATION
  Report Type: Spontaneous
  Country: DE (occurrence: DE)
  Receive Date: 20191212
  Receipt Date: 20191212
  Transmission Date: 20200122
  Serious: Yes (Other)
  Sender: FDA-Public Use
  Company Number: DE-TEVA-2019-DE-1149489

PATIENT
  Age: 67 Year
  Sex: Male
  Weight: 86 kg

DRUGS (3)
  1. DOXYCYCLINE. [Suspect]
     Active Substance: DOXYCYCLINE
     Indication: ERYTHEMA MIGRANS
     Dosage: 200 MG
     Route: 048
  2. RAMIPRIL. [Concomitant]
     Active Substance: RAMIPRIL
     Indication: HYPERTENSION
     Dosage: 2.5 MG
     Route: 048
  3. JODTHYROX 100 MCG/150 MCG [Concomitant]
     Indication: HYPOTHYROIDISM
     Route: 048

REACTIONS (3)
  - Bradycardia [Unknown]
  - Balance disorder [Unknown]
  - Dizziness [Unknown]

NARRATIVE: CASE EVENT DATE: 20191021
